FAERS Safety Report 24771959 (Version 2)
Quarter: 2025Q1

REPORT INFORMATION
  Report Type: Spontaneous
  Country: US (occurrence: US)
  Receive Date: 20241224
  Receipt Date: 20250108
  Transmission Date: 20250409
  Serious: No
  Sender: SANOFI AVENTIS
  Company Number: US-SA-2024SA376355

PATIENT
  Age: 9 Year
  Sex: Female

DRUGS (9)
  1. TZIELD [Suspect]
     Active Substance: TEPLIZUMAB-MZWV
     Indication: Diabetes prophylaxis
     Route: 042
     Dates: start: 20230605, end: 20230605
  2. TZIELD [Suspect]
     Active Substance: TEPLIZUMAB-MZWV
     Route: 042
     Dates: start: 20230606, end: 20230606
  3. TZIELD [Suspect]
     Active Substance: TEPLIZUMAB-MZWV
     Route: 042
     Dates: start: 20230607, end: 20230607
  4. TZIELD [Suspect]
     Active Substance: TEPLIZUMAB-MZWV
     Route: 042
     Dates: start: 20230608, end: 20230608
  5. TZIELD [Suspect]
     Active Substance: TEPLIZUMAB-MZWV
     Dosage: 1000 UG, QD
     Route: 042
     Dates: start: 20230609, end: 20230618
  6. BENADRYL [Concomitant]
     Active Substance: DIPHENHYDRAMINE HYDROCHLORIDE
     Route: 047
     Dates: start: 20230608, end: 20230610
  7. ACETAMINOPHEN [Concomitant]
     Active Substance: ACETAMINOPHEN
     Indication: Premedication
     Dosage: 387.2 MG, QD
     Route: 048
     Dates: start: 20230605, end: 20230610
  8. DIPHENHYDRAMINE [Concomitant]
     Active Substance: DIPHENHYDRAMINE
     Indication: Premedication
     Dosage: 26 MG, QD
     Route: 042
     Dates: start: 20230605, end: 20230610
  9. ONDANSETRON [Concomitant]
     Active Substance: ONDANSETRON
     Indication: Premedication
     Dosage: 2.6 MG, QD
     Route: 042
     Dates: start: 20230605, end: 20230610

REACTIONS (2)
  - Nausea [Recovered/Resolved]
  - Rash macular [Recovered/Resolved]

NARRATIVE: CASE EVENT DATE: 20230608
